FAERS Safety Report 4957150-0 (Version None)
Quarter: 2006Q1

REPORT INFORMATION
  Report Type: 
  Country: None (occurrence: None)
  Receive Date: 20060329
  Receipt Date: 20050928
  Transmission Date: 20060701
  Serious: Yes (Hospitalization, Other)
  Sender: FDA-Public Use
  Company Number: US-MERCK-0509USA04748

PATIENT
  Age: 67 Year
  Sex: Male
  Weight: 106 kg

DRUGS (2)
  1. VIOXX [Suspect]
     Route: 048
     Dates: start: 20011219, end: 20040201
  2. VIOXX [Suspect]
     Route: 048
     Dates: start: 20011219, end: 20031121

REACTIONS (28)
  - AORTIC ANEURYSM [None]
  - BARRETT'S OESOPHAGUS [None]
  - BENIGN PROSTATIC HYPERPLASIA [None]
  - BLOOD CALCIUM INCREASED [None]
  - CEREBROVASCULAR ACCIDENT [None]
  - CHEST PAIN [None]
  - COLONIC POLYP [None]
  - CONSTIPATION [None]
  - COUGH [None]
  - DEEP VEIN THROMBOSIS [None]
  - DIVERTICULUM INTESTINAL [None]
  - DYSPHAGIA [None]
  - DYSPLASIA [None]
  - EATING DISORDER [None]
  - FALL [None]
  - GASTROOESOPHAGEAL REFLUX DISEASE [None]
  - HAEMORRHOIDS [None]
  - HIATUS HERNIA [None]
  - MYOCARDIAL INFARCTION [None]
  - NEPHROLITHIASIS [None]
  - ORGAN FAILURE [None]
  - PARKINSON'S DISEASE [None]
  - POLLAKIURIA [None]
  - PULMONARY EMBOLISM [None]
  - RENAL CYST [None]
  - SINUS BRADYCARDIA [None]
  - SUPRAVENTRICULAR TACHYCARDIA [None]
  - THROMBOSIS [None]
